FAERS Safety Report 6334841-0 (Version None)
Quarter: 2009Q3

REPORT INFORMATION
  Report Type: 
  Country: None (occurrence: None)
  Receive Date: 20090831
  Receipt Date: 20090826
  Transmission Date: 20100115
  Serious: Yes (Death, Hospitalization, Other)
  Sender: FDA-Public Use
  Company Number: PHHY2008AU20610

PATIENT
  Sex: Male

DRUGS (3)
  1. CLOZARIL [Suspect]
     Indication: SCHIZOPHRENIA
     Dosage: 200 MG
     Dates: start: 20000412
  2. SERTRALINE HCL [Concomitant]
     Dosage: 100 MG, QHS
     Dates: start: 20080422
  3. QUETIAPINE [Concomitant]
     Dosage: 100 MG, PRN

REACTIONS (6)
  - ANTIPSYCHOTIC DRUG LEVEL INCREASED [None]
  - COMA [None]
  - DEPRESSION [None]
  - OVERDOSE [None]
  - PARANOIA [None]
  - STRESS [None]
